FAERS Safety Report 4667471-7 (Version None)
Quarter: 2005Q2

REPORT INFORMATION
  Report Type: 
  Country: None (occurrence: None)
  Receive Date: 20050520
  Receipt Date: 20040514
  Transmission Date: 20051028
  Serious: Yes (Death, Hospitalization)
  Sender: FDA-Public Use
  Company Number: PH-2004-BP-03779RP

PATIENT
  Sex: Male

DRUGS (1)
  1. MICARDIS 40MG TABLETS [Suspect]
     Indication: HYPERTENSION
     Route: 048
     Dates: start: 20031124

REACTIONS (2)
  - CEREBROVASCULAR ACCIDENT [None]
  - PNEUMONIA [None]
